FAERS Safety Report 8219909-6 (Version None)
Quarter: 2012Q1

REPORT INFORMATION
  Report Type: 
  Country: None (occurrence: None)
  Receive Date: 20120319
  Receipt Date: 20120312
  Transmission Date: 20120608
  Serious: Yes (Other)
  Sender: FDA-Public Use
  Company Number: BR-PFIZER INC-2012064936

PATIENT
  Age: 86 Year
  Sex: Female
  Weight: 64 kg

DRUGS (7)
  1. LATANOPROST [Suspect]
     Indication: GLAUCOMA
     Dosage: UNK
     Route: 047
  2. XALATAN [Suspect]
     Indication: CATARACT
  3. LATANOPROST [Suspect]
     Indication: CATARACT
  4. FLUOXETINE [Concomitant]
     Indication: DEPRESSION
     Dosage: UNK
  5. INDAPAMIDE [Concomitant]
     Indication: HYPERTENSION
     Dosage: UNK
  6. XALATAN [Suspect]
     Indication: GLAUCOMA
     Dosage: UNK
     Route: 047
  7. SUSTRATE [Concomitant]
     Dosage: UNK

REACTIONS (4)
  - GLAUCOMA [None]
  - EYE PAIN [None]
  - DEMENTIA ALZHEIMER'S TYPE [None]
  - CATARACT [None]
